FAERS Safety Report 6893403-7 (Version None)
Quarter: 2010Q3

REPORT INFORMATION
  Report Type: 
  Country: None (occurrence: None)
  Receive Date: 20100731
  Receipt Date: 20090901
  Transmission Date: 20110219
  Serious: No
  Sender: FDA-Public Use
  Company Number: US-PFIZER INC-2008067007

PATIENT
  Sex: Female
  Weight: 74.4 kg

DRUGS (2)
  1. LIPITOR [Suspect]
     Indication: BLOOD CHOLESTEROL
     Dosage: 40 MG, 1X/DAY
     Dates: start: 20080301
  2. GLUCOVANCE [Concomitant]

REACTIONS (3)
  - ABDOMINAL PAIN UPPER [None]
  - DYSPEPSIA [None]
  - HEPATIC PAIN [None]
